FAERS Safety Report 22262402 (Version 1)
Quarter: 2023Q2

REPORT INFORMATION
  Report Type: Spontaneous
  Country: US (occurrence: None)
  Receive Date: 20230428
  Receipt Date: 20230428
  Transmission Date: 20230721
  Serious: No
  Sender: FDA-Public Use
  Company Number: 2023A090565

PATIENT

DRUGS (1)
  1. SYMBICORT [Suspect]
     Active Substance: BUDESONIDE\FORMOTEROL FUMARATE DIHYDRATE
     Indication: Bronchiectasis
     Dosage: 160 UG, 2 PUFFS
     Route: 055

REACTIONS (3)
  - Cough [Not Recovered/Not Resolved]
  - Osteoporosis [Unknown]
  - Product use issue [Unknown]
